FAERS Safety Report 19838278 (Version 1)
Quarter: 2021Q3

REPORT INFORMATION
  Report Type: Spontaneous
  Country: US (occurrence: US)
  Receive Date: 20210914
  Receipt Date: 20210914
  Transmission Date: 20211014
  Serious: No
  Sender: FDA-Public Use
  Company Number: None

PATIENT
  Age: 55 Year
  Sex: Male
  Weight: 87 kg

DRUGS (1)
  1. SERTRALINE (SERTRALINE HCL 100MG TAB) [Suspect]
     Active Substance: SERTRALINE HYDROCHLORIDE
     Indication: DEPRESSION
     Route: 048
     Dates: start: 19980810, end: 20210410

REACTIONS (4)
  - Delusion [None]
  - Overdose [None]
  - Electrocardiogram QT prolonged [None]
  - Confusional state [None]

NARRATIVE: CASE EVENT DATE: 20210909
